FAERS Safety Report 7796547-0 (Version None)
Quarter: 2011Q4

REPORT INFORMATION
  Report Type: 
  Country: None (occurrence: None)
  Receive Date: 20111005
  Receipt Date: 20110927
  Transmission Date: 20120403
  Serious: Yes (Hospitalization, Other)
  Sender: FDA-Public Use
  Company Number: JP-SHIRE-ALL1-2011-02410

PATIENT
  Age: 60 Year
  Sex: Male

DRUGS (15)
  1. CINACALCET HYDROCHLORIDE [Concomitant]
     Dosage: 25 MG, UNKNOWN
     Route: 048
     Dates: start: 20100416, end: 20100617
  2. EPOGIN [Concomitant]
     Indication: PRODUCT USED FOR UNKNOWN INDICATION
     Dosage: 9000 IU, 1X/WEEK
     Route: 042
  3. ROCALTROL [Concomitant]
     Indication: PRODUCT USED FOR UNKNOWN INDICATION
     Dosage: 1.5 ?G, UNKNOWN
     Route: 042
     Dates: start: 20070523, end: 20090731
  4. D-SORBITOL [Concomitant]
     Indication: CONSTIPATION
     Dosage: 10 MG, UNKNOWN
     Route: 048
     Dates: start: 20070704
  5. LANTHANUM CARBONATE [Suspect]
     Indication: HYPERPHOSPHATAEMIA
     Dosage: 750 MG, OTHER (IMMEDIATELY AFTER MEALS)
     Route: 048
     Dates: start: 20091005, end: 20101002
  6. KALIMATE [Concomitant]
     Indication: PRODUCT USED FOR UNKNOWN INDICATION
     Dosage: 10 MG, UNKNOWN
     Route: 048
     Dates: start: 20070704
  7. CINACALCET HYDROCHLORIDE [Concomitant]
     Indication: HYPERPARATHYROIDISM SECONDARY
     Dosage: 75 MG, 1X/WEEK
     Route: 048
     Dates: start: 20091023, end: 20100414
  8. NORPACE [Concomitant]
     Indication: PRODUCT USED FOR UNKNOWN INDICATION
     Dosage: 200 MG, UNKNOWN
     Route: 048
     Dates: start: 20070309
  9. LORAMET [Concomitant]
     Indication: PRODUCT USED FOR UNKNOWN INDICATION
     Dosage: 1 MG, UNKNOWN
     Route: 048
     Dates: start: 20060609
  10. DIOVAN [Concomitant]
     Indication: PRODUCT USED FOR UNKNOWN INDICATION
     Dosage: 160 MG, 1X/WEEK
     Route: 048
     Dates: start: 20080507
  11. ROCALTROL [Concomitant]
     Dosage: 1.0 ?G, UNKNOWN
     Route: 042
     Dates: start: 20090810
  12. ALLOPURINOL [Concomitant]
     Indication: PRODUCT USED FOR UNKNOWN INDICATION
     Dosage: 100 MG, UNKNOWN
     Route: 048
     Dates: start: 20080507
  13. ANPLAG [Concomitant]
     Indication: PRODUCT USED FOR UNKNOWN INDICATION
     Dosage: 200 MG, UNKNOWN
     Route: 048
     Dates: start: 20060609
  14. CINACALCET HYDROCHLORIDE [Concomitant]
     Dosage: 50 MG, 1X/WEEK
     Route: 048
     Dates: start: 20100618, end: 20101002
  15. OXATOMIDE [Concomitant]
     Indication: PRODUCT USED FOR UNKNOWN INDICATION
     Dosage: UNK, AS REQ'D
     Route: 048

REACTIONS (3)
  - JAUNDICE [None]
  - CONSTIPATION [None]
  - HAEMATEMESIS [None]
